FAERS Safety Report 4699599-X (Version None)
Quarter: 2005Q2

REPORT INFORMATION
  Report Type: 
  Country: None (occurrence: None)
  Receive Date: 20050204
  Receipt Date: 20050204
  Transmission Date: 20051028
  Serious: Yes (Other)
  Sender: FDA-Public Use
  Company Number: None

PATIENT
  Sex: Female

DRUGS (8)
  1. LISINOPRIL [Suspect]
     Indication: CARDIAC FAILURE CONGESTIVE
     Dosage: ORAL TWICE ONLY
     Route: 048
  2. LISINOPRIL [Suspect]
     Indication: HYPERTENSION
     Dosage: ORAL TWICE ONLY
     Route: 048
  3. COMBIVENT [Concomitant]
  4. ADVAIR [Concomitant]
  5. K-DUR 10 [Concomitant]
  6. DIGOXIN [Concomitant]
  7. DIOVAN [Concomitant]
  8. FUROSEMIDE [Concomitant]

REACTIONS (2)
  - COUGH [None]
  - DYSPNOEA EXERTIONAL [None]
